FAERS Safety Report 5291010-3 (Version None)
Quarter: 2007Q2

REPORT INFORMATION
  Report Type: 
  Country: None (occurrence: None)
  Receive Date: 20070409
  Receipt Date: 20070327
  Transmission Date: 20071010
  Serious: Yes (Hospitalization)
  Sender: FDA-Public Use
  Company Number: US-ELI_LILLY_AND_COMPANY-US200703005662

PATIENT
  Age: 83 Year
  Sex: Female

DRUGS (9)
  1. EVISTA [Suspect]
     Indication: OSTEOPENIA
     Dosage: 60 MG, UNK
     Route: 048
     Dates: start: 20030101
  2. DIOVAN [Concomitant]
  3. ZIAC [Concomitant]
  4. NIFEDIPINE [Concomitant]
  5. SINGULAIR [Concomitant]
  6. EYE DROPS [Concomitant]
  7. CALCIUM CARBONATE [Concomitant]
  8. VITAMINS [Concomitant]
  9. TUMS [Concomitant]

REACTIONS (2)
  - ASTHMA [None]
  - PULMONARY CONGESTION [None]
